FAERS Safety Report 19421998 (Version 1)
Quarter: 2021Q2

REPORT INFORMATION
  Report Type: Spontaneous
  Country: US (occurrence: US)
  Receive Date: 20210615
  Receipt Date: 20210615
  Transmission Date: 20210717
  Serious: Yes (Other)
  Sender: FDA-Public Use
  Company Number: None

PATIENT
  Age: 67 Year
  Sex: Female

DRUGS (18)
  1. LEVOFLOXACIN. [Concomitant]
     Active Substance: LEVOFLOXACIN
  2. LOPERAMIDE [Concomitant]
     Active Substance: LOPERAMIDE
  3. TRESIBA FLEX [Concomitant]
  4. TRIAMIHCTZ [Concomitant]
  5. CENTRUM SILVER CHW [Concomitant]
  6. CREON [Concomitant]
     Active Substance: PANCRELIPASE AMYLASE\PANCRELIPASE LIPASE\PANCRELIPASE PROTEASE
  7. MULTI?VIT [Concomitant]
     Active Substance: VITAMINS
  8. PROCHLORPER [Concomitant]
  9. DIPHEN/ATROP [Concomitant]
     Active Substance: ATROPINE SULFATE\DIPHENOXYLATE
  10. NOVOLOG [Concomitant]
     Active Substance: INSULIN ASPART
  11. RISPERDAL [Concomitant]
     Active Substance: RISPERIDONE
  12. VITAMIN D3 [Concomitant]
     Active Substance: CHOLECALCIFEROL
  13. PANTOPRAZOLE [Concomitant]
     Active Substance: PANTOPRAZOLE
  14. PROLIA [Suspect]
     Active Substance: DENOSUMAB
     Indication: OSTEOPOROSIS
     Dosage: ?          OTHER DOSE:1 SYR;OTHER FREQUENCY:EVERY 6 MONTHS;?
     Route: 058
     Dates: start: 20180515
  15. DEXAMETHASON [Concomitant]
     Active Substance: DEXAMETHASONE
  16. INSULIN ASPA FLEXPEN [Concomitant]
  17. ONDANSETRON [Concomitant]
     Active Substance: ONDANSETRON
  18. LIDO/PRILOCN CRE [Concomitant]

REACTIONS (2)
  - Chemotherapy [None]
  - Therapy interrupted [None]

NARRATIVE: CASE EVENT DATE: 20210614
